FAERS Safety Report 4961048-1 (Version None)
Quarter: 2006Q1

REPORT INFORMATION
  Report Type: 
  Country: None (occurrence: None)
  Receive Date: 20060328
  Receipt Date: 20060316
  Transmission Date: 20060701
  Serious: No
  Sender: FDA-Public Use
  Company Number: 06H-123-0306772-00

PATIENT
  Sex: 0

DRUGS (6)
  1. FENTANYL [Suspect]
     Indication: ANAESTHESIA
     Dosage: 1 UG/KG, INTRAVENOUS
     Route: 042
  2. PROPOFOL [Suspect]
     Indication: ANAESTHESIA
     Dosage: SEE IMAGE
     Route: 042
  3. LIDOCAINE [Concomitant]
  4. BENOXINATE HYDROCHLORIDE (0.4% NOVESIN) (OXYBUPROCAINE HYDROCHLORIDE) [Concomitant]
  5. 10% POVIDONE-IODINE (BETADINE) (POVIDONE-IODINE) [Concomitant]
  6. TOBRAMYCI8N (TOBREX) (TOBRAMYCIN) [Concomitant]

REACTIONS (2)
  - AIRWAY COMPLICATION OF ANAESTHESIA [None]
  - OXYGEN SATURATION DECREASED [None]
